FAERS Safety Report 6212650-0 (Version None)
Quarter: 2009Q2

REPORT INFORMATION
  Report Type: 
  Country: None (occurrence: None)
  Receive Date: 20090603
  Receipt Date: 20090527
  Transmission Date: 20091009
  Serious: Yes (Other)
  Sender: FDA-Public Use
  Company Number: US-ASTRAZENECA-2007UW27900

PATIENT
  Age: 949 Month
  Sex: Female
  Weight: 93.4 kg

DRUGS (4)
  1. ARIMIDEX [Suspect]
     Indication: BREAST CANCER FEMALE
     Route: 048
     Dates: start: 20071101
  2. CALCIUM [Concomitant]
  3. VITAMIN [Concomitant]
  4. GLUCOSAMINE W/CHONDROITIN [Concomitant]

REACTIONS (4)
  - ARTHRALGIA [None]
  - BLINDNESS UNILATERAL [None]
  - COGNITIVE DISORDER [None]
  - HAIR GROWTH ABNORMAL [None]
